FAERS Safety Report 15998619 (Version 1)
Quarter: 2019Q1

REPORT INFORMATION
  Report Type: Spontaneous
  Country: AU (occurrence: AU)
  Receive Date: 20190223
  Receipt Date: 20190223
  Transmission Date: 20190418
  Serious: Yes (Hospitalization, Other)
  Sender: FDA-Public Use
  Company Number: AU-ACCORD-108883

PATIENT
  Age: 52 Year
  Sex: Male

DRUGS (8)
  1. ACETYLSALICYLIC ACID [Concomitant]
     Active Substance: ASPIRIN
  2. MESALAZINE [Concomitant]
     Active Substance: MESALAMINE
     Dosage: MR
  3. METOPROLOL. [Concomitant]
     Active Substance: METOPROLOL
  4. ESOMEPRAZOLE/ESOMEPRAZOLE MAGNESIUM/ESOMEPRAZOLE SODIUM [Suspect]
     Active Substance: ESOMEPRAZOLE
     Indication: PRODUCT USED FOR UNKNOWN INDICATION
     Dates: start: 2002, end: 201709
  5. ATORVASTATIN/ATORVASTATIN CALCIUM [Concomitant]
  6. TELMISARTAN. [Concomitant]
     Active Substance: TELMISARTAN
  7. MERCAPTOPURINE/MERCAPTOPURINE ANHYDROUS [Concomitant]
  8. CEFALEXIN [Concomitant]
     Active Substance: CEPHALEXIN

REACTIONS (7)
  - Muscle spasms [None]
  - Hypocalcaemia [Recovered/Resolved]
  - Constipation [None]
  - Hypomagnesaemia [Recovered/Resolved]
  - Hypophosphataemia [Recovered/Resolved]
  - Paraesthesia oral [None]
  - Paraesthesia [None]

NARRATIVE: CASE EVENT DATE: 20170824
